FAERS Safety Report 4931136-4 (Version None)
Quarter: 2006Q1

REPORT INFORMATION
  Report Type: 
  Country: None (occurrence: None)
  Receive Date: 20060302
  Receipt Date: 20050829
  Transmission Date: 20060701
  Serious: Yes (Hospitalization)
  Sender: FDA-Public Use
  Company Number: US-MERCK-0508USA05031

PATIENT
  Age: 63 Year
  Sex: Male
  Weight: 89 kg

DRUGS (10)
  1. VIOXX [Suspect]
     Indication: PAIN
     Route: 048
     Dates: start: 20010101, end: 20040801
  2. ATENOLOL [Concomitant]
     Route: 065
  3. AMBIEN [Concomitant]
     Route: 065
  4. NEURONTIN [Concomitant]
     Route: 065
  5. TUSSIONEX [Concomitant]
     Route: 065
  6. CELEXA [Concomitant]
     Route: 065
  7. PRILOSEC [Concomitant]
     Route: 048
  8. PREDNISONE [Concomitant]
     Route: 065
  9. ALBUTEROL [Concomitant]
     Route: 065
  10. ATROVENT [Concomitant]
     Route: 065

REACTIONS (12)
  - ANGINA UNSTABLE [None]
  - CHRONIC OBSTRUCTIVE PULMONARY DISEASE [None]
  - CONFUSIONAL STATE [None]
  - CORONARY ARTERY DISEASE [None]
  - DIARRHOEA [None]
  - GASTRITIS [None]
  - IRRITABLE BOWEL SYNDROME [None]
  - OESOPHAGITIS [None]
  - PNEUMONIA [None]
  - POLLAKIURIA [None]
  - RESPIRATORY FAILURE [None]
  - SHARED PSYCHOTIC DISORDER [None]
